FAERS Safety Report 9262924 (Version 1)
Quarter: 2013Q2

REPORT INFORMATION
  Report Type: Spontaneous
  Country: FR (occurrence: None)
  Receive Date: 20130426
  Receipt Date: 20130426
  Transmission Date: 20140414
  Serious: Yes (Other)
  Sender: FDA-Public Use
  Company Number: FK201301291

PATIENT
  Age: 47 Year
  Sex: Male

DRUGS (3)
  1. FLUOROURACIL [Suspect]
     Indication: PANCREATIC CARCINOMA METASTATIC
  2. IRINOTECAN (MANUFACTURER UNKNOWN) (IRINOTECAN) (IRINOTECAN) [Suspect]
     Indication: PANCREATIC CARCINOMA METASTATIC
  3. OXALIPLATIN (MANUFACTURER UNKNOWN) (OXALIPLATIN) (OXALIPLATIN) [Suspect]
     Indication: PANCREATIC CARCINOMA METASTATIC

REACTIONS (3)
  - Pneumocystis jirovecii pneumonia [None]
  - Bronchopulmonary aspergillosis [None]
  - Febrile neutropenia [None]
